FAERS Safety Report 8349490-2 (Version None)
Quarter: 2012Q2

REPORT INFORMATION
  Report Type: 
  Country: None (occurrence: None)
  Receive Date: 20120508
  Receipt Date: 20120508
  Transmission Date: 20120825
  Serious: Yes (Hospitalization)
  Sender: FDA-Public Use
  Company Number: None

PATIENT
  Age: 67 Year
  Sex: Male
  Weight: 152.7 kg

DRUGS (1)
  1. LEVETIRACETAM [Suspect]
     Indication: COMPLEX PARTIAL SEIZURES
     Dosage: 500 MCG BID PO
     Route: 048
     Dates: start: 20110804, end: 20110831

REACTIONS (4)
  - CONFUSIONAL STATE [None]
  - RENAL FAILURE ACUTE [None]
  - SOMNOLENCE [None]
  - SEDATION [None]
